FAERS Safety Report 25893708 (Version 1)
Quarter: 2025Q4

REPORT INFORMATION
  Report Type: Spontaneous
  Country: US (occurrence: US)
  Receive Date: 20251008
  Receipt Date: 20251008
  Transmission Date: 20260118
  Serious: No
  Sender: Kenvue
  Company Number: US-KENVUE-20251000869

PATIENT
  Sex: Female

DRUGS (1)
  1. TYLENOL [Suspect]
     Active Substance: ACETAMINOPHEN
     Indication: Foot fracture
     Dosage: TOOK SEVERAL TIMES A DAY, ACTUALLY TOOK QUITE A BIT OF IT FOR NEARLY 2 MONTHS
     Route: 065

REACTIONS (2)
  - Exposure during pregnancy [Unknown]
  - Incorrect product administration duration [Unknown]
